FAERS Safety Report 5592346-9 (Version None)
Quarter: 2008Q1

REPORT INFORMATION
  Report Type: 
  Country: None (occurrence: None)
  Receive Date: 20080111
  Receipt Date: 20071226
  Transmission Date: 20080703
  Serious: Yes (Hospitalization)
  Sender: FDA-Public Use
  Company Number: 2007JP005689

PATIENT
  Age: 17 Year

DRUGS (3)
  1. PROGRAF            (TACROLIMUS) [Suspect]
     Indication: BONE MARROW TRANSPLANT
  2. BUSULFEX [Suspect]
     Indication: BONE MARROW TRANSPLANT
     Dosage: 1 MG/KG
  3. METHOTREXATE [Concomitant]

REACTIONS (2)
  - BONE MARROW TRANSPLANT [None]
  - VENOOCCLUSIVE LIVER DISEASE [None]
